FAERS Safety Report 17274451 (Version 1)
Quarter: 2020Q1

REPORT INFORMATION
  Report Type: Spontaneous
  Country: US (occurrence: US)
  Receive Date: 20200115
  Receipt Date: 20200115
  Transmission Date: 20200409
  Serious: Yes (Hospitalization, Other)
  Sender: FDA-Public Use
  Company Number: US-NOVOPROD-706818

PATIENT
  Age: 48 Year
  Sex: Female
  Weight: 115.67 kg

DRUGS (5)
  1. ACTIVELLA [Suspect]
     Active Substance: ESTRADIOL\NORETHINDRONE ACETATE
     Indication: MENORRHAGIA
     Dosage: 2 TABLETS DAILY
     Route: 048
     Dates: start: 20170601
  2. FERROUS GLUCONATE [Concomitant]
     Active Substance: FERROUS GLUCONATE
     Indication: IRON DEFICIENCY ANAEMIA
     Dosage: 240 MG, TID
     Route: 048
     Dates: start: 20170428, end: 201712
  3. DOCUSATE SODIUM. [Concomitant]
     Active Substance: DOCUSATE SODIUM
     Indication: CONSTIPATION PROPHYLAXIS
     Dosage: 100 MG, BID
     Route: 048
     Dates: start: 20170428
  4. IBUPROFEN. [Concomitant]
     Active Substance: IBUPROFEN
     Indication: DYSMENORRHOEA
     Dosage: 400 MG, PRN
     Route: 048
     Dates: start: 2000
  5. ELAGOLIX [Suspect]
     Active Substance: ELAGOLIX
     Indication: UTERINE LEIOMYOMA
     Dosage: 600 MG, QD
     Route: 048
     Dates: start: 20170601

REACTIONS (5)
  - Obesity [Recovered/Resolved]
  - Off label use [Unknown]
  - Dehydration [Recovered/Resolved]
  - Helicobacter gastritis [Unknown]
  - Hepatic steatosis [Unknown]

NARRATIVE: CASE EVENT DATE: 20170601
